FAERS Safety Report 25235713 (Version 1)
Quarter: 2025Q2

REPORT INFORMATION
  Report Type: Spontaneous
  Country: IN (occurrence: IN)
  Receive Date: 20250424
  Receipt Date: 20250424
  Transmission Date: 20250716
  Serious: Yes (Other)
  Sender: ALEXION PHARMACEUTICALS
  Company Number: IN-AstraZeneca-CH-00852745A

PATIENT

DRUGS (4)
  1. FASENRA [Suspect]
     Active Substance: BENRALIZUMAB
     Dosage: 30 MILLIGRAM, Q8W
     Route: 065
  2. FASENRA [Suspect]
     Active Substance: BENRALIZUMAB
     Route: 065
  3. FASENRA [Suspect]
     Active Substance: BENRALIZUMAB
     Route: 065
  4. FASENRA [Concomitant]
     Active Substance: BENRALIZUMAB
     Route: 065

REACTIONS (2)
  - Contusion [Unknown]
  - Contusion [Unknown]
